FAERS Safety Report 5696516-0 (Version None)
Quarter: 2008Q2

REPORT INFORMATION
  Report Type: 
  Country: None (occurrence: None)
  Receive Date: 20080408
  Receipt Date: 20080328
  Transmission Date: 20081010
  Serious: Yes (Hospitalization)
  Sender: FDA-Public Use
  Company Number: US-JNJFOC-20080400036

PATIENT
  Sex: Female
  Weight: 108.86 kg

DRUGS (7)
  1. FENTANYL TRANSDERMAL SYSTEM [Suspect]
     Route: 062
  2. FENTANYL TRANSDERMAL SYSTEM [Suspect]
     Route: 062
  3. FENTANYL TRANSDERMAL SYSTEM [Suspect]
     Indication: PAIN
     Route: 062
  4. PROZAC [Concomitant]
     Indication: DEPRESSION
     Route: 048
  5. PROZAC [Concomitant]
     Indication: TEMPOROMANDIBULAR JOINT SYNDROME
     Route: 048
  6. AMITRIPTYLINE HCL [Concomitant]
     Indication: DEPRESSION
     Route: 048
  7. AMITRIPTYLINE HCL [Concomitant]
     Indication: PAIN
     Route: 048

REACTIONS (5)
  - CHEST DISCOMFORT [None]
  - DYSPNOEA [None]
  - MEMORY IMPAIRMENT [None]
  - PAIN [None]
  - SUDDEN ONSET OF SLEEP [None]
